FAERS Safety Report 6632309-5 (Version None)
Quarter: 2010Q1

REPORT INFORMATION
  Report Type: 
  Country: None (occurrence: None)
  Receive Date: 20100312
  Receipt Date: 20100305
  Transmission Date: 20100710
  Serious: Yes (Other)
  Sender: FDA-Public Use
  Company Number: B0609102A

PATIENT
  Sex: Female

DRUGS (3)
  1. RELENZA [Suspect]
     Indication: INFLUENZA
     Dosage: 20MG PER DAY
     Route: 055
     Dates: start: 20091031
  2. TYLENOL-500 [Concomitant]
     Indication: ANTIPYRESIS
     Dosage: 187.5MG PER DAY
     Route: 048
     Dates: start: 20091031, end: 20091101
  3. CELESTAMINE TAB [Concomitant]
     Indication: ANTIPYRESIS
     Route: 048
     Dates: start: 20091031, end: 20091101

REACTIONS (4)
  - ASTHENIA [None]
  - CONVULSION [None]
  - FALL [None]
  - LOSS OF CONSCIOUSNESS [None]
